FAERS Safety Report 5786463-8 (Version None)
Quarter: 2008Q2

REPORT INFORMATION
  Report Type: 
  Country: None (occurrence: None)
  Receive Date: 20080624
  Receipt Date: 20080619
  Transmission Date: 20081010
  Serious: Yes (Congenital Anomaly)
  Sender: FDA-Public Use
  Company Number: US-BRISTOL-MYERS SQUIBB COMPANY-14133490

PATIENT
  Age: 33 Year
  Sex: Female

DRUGS (5)
  1. EFAVIRENZ [Suspect]
     Indication: HIV INFECTION
  2. NEVIRAPINE [Suspect]
     Indication: HIV INFECTION
  3. KALETRA [Suspect]
     Indication: HIV INFECTION
  4. COMBIVIR [Suspect]
     Indication: HIV INFECTION
  5. KIVEXA [Suspect]
     Indication: HIV INFECTION

REACTIONS (4)
  - CARDIAC MALPOSITION [None]
  - DIAPHRAGMATIC APLASIA [None]
  - HEPATIC DISPLACEMENT [None]
  - PREGNANCY [None]
